FAERS Safety Report 16625041 (Version 1)
Quarter: 2019Q3

REPORT INFORMATION
  Report Type: Report from Study
  Country: None (occurrence: FR)
  Receive Date: 20190724
  Receipt Date: 20190724
  Transmission Date: 20191004
  Serious: Yes (Hospitalization)
  Sender: FDA-Public Use
  Company Number: FR-UNICHEM PHARMACEUTICALS (USA) INC-UCM201907-000264

PATIENT

DRUGS (1)
  1. MEMANTINE. [Suspect]
     Active Substance: MEMANTINE
     Indication: NYSTAGMUS

REACTIONS (2)
  - Mania [Unknown]
  - Confusional state [Unknown]
